FAERS Safety Report 5733543-9 (Version None)
Quarter: 2008Q2

REPORT INFORMATION
  Report Type: 
  Country: None (occurrence: None)
  Receive Date: 20080509
  Receipt Date: 20080506
  Transmission Date: 20081010
  Serious: Yes (Other)
  Sender: FDA-Public Use
  Company Number: GB-WYE-G01499208

PATIENT
  Age: 11 Year
  Sex: Female
  Weight: 31.8 kg

DRUGS (1)
  1. IBUPROFEN TABLETS [Suspect]
     Dosage: UNKNOWN

REACTIONS (2)
  - EYE PAIN [None]
  - VISION BLURRED [None]
